FAERS Safety Report 8972289 (Version 5)
Quarter: 2013Q4

REPORT INFORMATION
  Report Type: Spontaneous
  Country: FR (occurrence: FR)
  Receive Date: 20121219
  Receipt Date: 20131230
  Transmission Date: 20140711
  Serious: Yes (Death, Life-Threatening, Hospitalization, Other)
  Sender: FDA-Public Use
  Company Number: FR-JNJFOC-20121207896

PATIENT
  Age: 83 Year
  Sex: Male

DRUGS (10)
  1. XARELTO [Suspect]
     Indication: ARRHYTHMIA
     Route: 048
     Dates: start: 20121128, end: 20121201
  2. XARELTO [Suspect]
     Indication: CEREBROVASCULAR ACCIDENT PROPHYLAXIS
     Route: 048
     Dates: start: 20121128, end: 20121201
  3. XARELTO [Suspect]
     Indication: ATRIAL FIBRILLATION
     Route: 048
     Dates: start: 20121128, end: 20121201
  4. MIANSERINE RATIOPHARM [Concomitant]
     Route: 065
  5. SECTRAL [Concomitant]
     Route: 065
  6. PRAVASTATIN [Concomitant]
     Route: 065
  7. PANTOPRAZOLE [Concomitant]
     Route: 065
  8. DORZOLAMIDE W/TIMOLOL [Concomitant]
     Route: 065
  9. AMLODIPINE [Concomitant]
     Route: 065
  10. PROTON PUMP INHIBITORS [Concomitant]
     Route: 065

REACTIONS (3)
  - Pulmonary alveolar haemorrhage [Fatal]
  - Hypoxia [Fatal]
  - Haemorrhagic stroke [Fatal]
